FAERS Safety Report 8134468-4 (Version None)
Quarter: 2012Q1

REPORT INFORMATION
  Report Type: 
  Country: None (occurrence: None)
  Receive Date: 20120214
  Receipt Date: 20120214
  Transmission Date: 20120608
  Serious: No
  Sender: FDA-Public Use
  Company Number: None

PATIENT
  Age: 57 Year
  Sex: Female
  Weight: 68.038 kg

DRUGS (1)
  1. MORPHINE [Suspect]

REACTIONS (4)
  - PRODUCT SUBSTITUTION ISSUE [None]
  - PAIN [None]
  - CONDITION AGGRAVATED [None]
  - QUALITY OF LIFE DECREASED [None]
